FAERS Safety Report 18789647 (Version 2)
Quarter: 2021Q1

REPORT INFORMATION
  Report Type: Report from Study
  Country: US (occurrence: US)
  Receive Date: 20210126
  Receipt Date: 20210315
  Transmission Date: 20210419
  Serious: Yes (Hospitalization, Other)
  Sender: FDA-Public Use
  Company Number: US-JNJFOC-20210116819

PATIENT
  Age: 71 Year
  Sex: Female
  Weight: 116.22 kg

DRUGS (19)
  1. ADVAIR HFA [Concomitant]
     Active Substance: FLUTICASONE PROPIONATE\SALMETEROL XINAFOATE
     Indication: BRONCHITIS
     Dosage: 100?50 MCG/DOSE INHALATION AEROSOL POWDER
  2. BUMETANIDE. [Concomitant]
     Active Substance: BUMETANIDE
     Route: 048
  3. METOPROLOL SUCCINATE ER [Concomitant]
     Active Substance: METOPROLOL SUCCINATE
     Dosage: HALF TABLET
     Route: 048
  4. DIGITEK [Concomitant]
     Active Substance: DIGOXIN
     Route: 048
  5. MACITENTAN [Suspect]
     Active Substance: MACITENTAN
     Indication: PULMONARY ARTERIAL HYPERTENSION
     Dosage: 10 MG
     Route: 065
     Dates: start: 20201022
  6. ASPIRIN. [Suspect]
     Active Substance: ASPIRIN
  7. PROAIR HFA [Concomitant]
     Active Substance: ALBUTEROL SULFATE
     Indication: DYSPNOEA
     Dosage: 108 (90 BASE) MCG/ACT
  8. PROAIR HFA [Concomitant]
     Active Substance: ALBUTEROL SULFATE
     Indication: CHRONIC OBSTRUCTIVE PULMONARY DISEASE
  9. DIGITEK [Concomitant]
     Active Substance: DIGOXIN
     Dosage: HALF TABLET
     Route: 048
  10. ZOCOR [Concomitant]
     Active Substance: SIMVASTATIN
     Route: 048
  11. OXYGEN. [Concomitant]
     Active Substance: OXYGEN
     Route: 045
  12. ALLOPURINOL. [Concomitant]
     Active Substance: ALLOPURINOL
  13. MULTAQ [Concomitant]
     Active Substance: DRONEDARONE
     Route: 048
  14. ADVAIR HFA [Concomitant]
     Active Substance: FLUTICASONE PROPIONATE\SALMETEROL XINAFOATE
     Indication: CHRONIC OBSTRUCTIVE PULMONARY DISEASE
  15. PROAIR HFA [Concomitant]
     Active Substance: ALBUTEROL SULFATE
     Indication: BRONCHITIS
  16. LINZESS [Concomitant]
     Active Substance: LINACLOTIDE
     Route: 048
  17. ELIQUIS [Suspect]
     Active Substance: APIXABAN
     Route: 048
  18. VITAMIN D3 [Concomitant]
     Active Substance: CHOLECALCIFEROL
     Dosage: 2000 UNIT 50 MCG TABLET
     Route: 048
  19. METOPROLOL SUCCINATE ER [Concomitant]
     Active Substance: METOPROLOL SUCCINATE
     Route: 048

REACTIONS (11)
  - SARS-CoV-2 test positive [Recovering/Resolving]
  - Chronic left ventricular failure [Unknown]
  - Gastrointestinal haemorrhage [Recovering/Resolving]
  - Fatigue [Recovering/Resolving]
  - Decreased appetite [Not Recovered/Not Resolved]
  - Peripheral swelling [Unknown]
  - Heart valve replacement [Recovering/Resolving]
  - Dyspnoea exertional [Unknown]
  - Hypertension [Unknown]
  - Atrial fibrillation [Unknown]
  - Oxygen consumption increased [Unknown]

NARRATIVE: CASE EVENT DATE: 202012
